FAERS Safety Report 14328989 (Version 1)
Quarter: 2017Q4

REPORT INFORMATION
  Report Type: Spontaneous
  Country: US (occurrence: US)
  Receive Date: 20171227
  Receipt Date: 20171227
  Transmission Date: 20180321
  Serious: No
  Sender: FDA-Public Use
  Company Number: US-PFIZER INC-2017550113

PATIENT
  Age: 60 Year
  Sex: Female
  Weight: 112.94 kg

DRUGS (1)
  1. XELJANZ XR [Suspect]
     Active Substance: TOFACITINIB CITRATE
     Indication: RHEUMATOID ARTHRITIS
     Dosage: 11 MG TABLETS BY MOUTH DAILY
     Route: 048
     Dates: start: 2016, end: 201711

REACTIONS (1)
  - Drug ineffective [Unknown]
